FAERS Safety Report 7040443-3 (Version None)
Quarter: 2010Q4

REPORT INFORMATION
  Report Type: 
  Country: None (occurrence: None)
  Receive Date: 20101008
  Receipt Date: 20101008
  Transmission Date: 20110411
  Serious: Yes (Disabling)
  Sender: FDA-Public Use
  Company Number: None

PATIENT
  Age: 69 Year
  Sex: Female
  Weight: 45.3597 kg

DRUGS (1)
  1. BONIVA [Suspect]
     Indication: OSTEOPOROSIS
     Dosage: 3 MG Q 1 MONTH IV; 3 MG Q 3MO IV; 3MG Q 3MO IV
     Route: 042

REACTIONS (2)
  - DEAFNESS UNILATERAL [None]
  - EAR DISORDER [None]
